FAERS Safety Report 15974302 (Version 1)
Quarter: 2019Q1

REPORT INFORMATION
  Report Type: Report from Study
  Country: US (occurrence: US)
  Receive Date: 20190218
  Receipt Date: 20190218
  Transmission Date: 20190418
  Serious: Yes (Disabling)
  Sender: FDA-Public Use
  Company Number: US-BEH-2019099317

PATIENT
  Age: 64 Year
  Sex: Female
  Weight: 45.35 kg

DRUGS (2)
  1. OXYGEN. [Concomitant]
     Active Substance: OXYGEN
     Route: 055
  2. HIZENTRA [Suspect]
     Active Substance: HUMAN IMMUNOGLOBULIN G
     Indication: PRIMARY IMMUNODEFICIENCY SYNDROME
     Dosage: 7 G, QW
     Route: 058
     Dates: start: 20190131

REACTIONS (3)
  - Dyspnoea [Recovered/Resolved]
  - Loss of personal independence in daily activities [Unknown]
  - Headache [Unknown]

NARRATIVE: CASE EVENT DATE: 20190131
